FAERS Safety Report 9981517 (Version 1)
Quarter: 2014Q1

REPORT INFORMATION
  Report Type: Report from Study
  Country: US (occurrence: US)
  Receive Date: 20140307
  Receipt Date: 20140307
  Transmission Date: 20141002
  Serious: No
  Sender: FDA-Public Use
  Company Number: US-ABBVIE-13P-163-1178341-00

PATIENT
  Age: 46 Year
  Sex: Female

DRUGS (7)
  1. HUMIRA [Suspect]
     Indication: CROHN^S DISEASE
     Dates: start: 20131015
  2. FUROSEMIDE [Concomitant]
     Indication: FLUID RETENTION
  3. SPIRONOLACTONE [Concomitant]
     Indication: FLUID RETENTION
  4. OMEPRAZOLE [Concomitant]
     Indication: GASTROOESOPHAGEAL REFLUX DISEASE
  5. BYSTOLIC [Concomitant]
     Indication: HYPERTENSION
  6. BYSTOLIC [Concomitant]
     Indication: HEART RATE INCREASED
  7. PREMARIN [Concomitant]
     Indication: HORMONE REPLACEMENT THERAPY

REACTIONS (3)
  - Cough [Not Recovered/Not Resolved]
  - Upper respiratory tract infection [Not Recovered/Not Resolved]
  - Nasal congestion [Not Recovered/Not Resolved]
